FAERS Safety Report 5123312-5 (Version None)
Quarter: 2006Q4

REPORT INFORMATION
  Report Type: 
  Country: None (occurrence: None)
  Receive Date: 20061009
  Receipt Date: 20061003
  Transmission Date: 20070319
  Serious: Yes (Death, Hospitalization)
  Sender: FDA-Public Use
  Company Number: FR-BRISTOL-MYERS SQUIBB COMPANY-13529763

PATIENT
  Age: 75 Year
  Sex: Female

DRUGS (5)
  1. COUMADIN [Suspect]
     Route: 048
     Dates: end: 20060819
  2. ASPIRIN [Suspect]
     Dates: end: 20060819
  3. DEPAKENE [Concomitant]
     Route: 048
     Dates: end: 20060821
  4. BISOPROLOL FUMARATE [Concomitant]
     Route: 048
     Dates: end: 20060821
  5. TRIATEC [Concomitant]
     Dates: end: 20060821

REACTIONS (2)
  - CEREBRAL HAEMORRHAGE [None]
  - FALL [None]
